FAERS Safety Report 9193031 (Version 1)
Quarter: 2013Q1

REPORT INFORMATION
  Report Type: Spontaneous
  Country: BR (occurrence: BR)
  Receive Date: 20130327
  Receipt Date: 20130327
  Transmission Date: 20140127
  Serious: Yes (Hospitalization, Other)
  Sender: FDA-Public Use
  Company Number: PHHY2012BR113465

PATIENT
  Sex: Female
  Weight: 47 kg

DRUGS (2)
  1. EXELON [Suspect]
     Dosage: 2 DF, A DAY
     Route: 048
  2. DONAREN [Concomitant]
     Indication: DEPRESSION
     Dosage: 1 DF, A DAY
     Route: 048

REACTIONS (3)
  - Dizziness [Recovered/Resolved]
  - Cardiac infection [Recovering/Resolving]
  - Hallucination [Recovering/Resolving]
